FAERS Safety Report 8548239-8 (Version None)
Quarter: 2012Q3

REPORT INFORMATION
  Report Type: 
  Country: None (occurrence: None)
  Receive Date: 20120730
  Receipt Date: 20120723
  Transmission Date: 20120928
  Serious: Yes (Life-Threatening, Hospitalization)
  Sender: FDA-Public Use
  Company Number: US-MSD-1207USA009902

PATIENT

DRUGS (6)
  1. ZOCOR [Suspect]
     Dosage: 80 MG, QD
     Route: 048
  2. METOPROLOL TARTRATE [Concomitant]
  3. LISINOPRIL [Concomitant]
  4. LANOXIN [Concomitant]
  5. AMLODIPINE BESYLATE [Suspect]
     Dosage: 10 MG, QD
     Route: 048
  6. ASPIRIN [Concomitant]

REACTIONS (15)
  - OLIGURIA [None]
  - WEIGHT DECREASED [None]
  - BLOOD URINE PRESENT [None]
  - RENAL FAILURE ACUTE [None]
  - RHABDOMYOLYSIS [None]
  - DRUG INTERACTION [None]
  - GENERAL PHYSICAL HEALTH DETERIORATION [None]
  - GAIT DISTURBANCE [None]
  - ALBUMIN URINE PRESENT [None]
  - METABOLIC ACIDOSIS [None]
  - LIVER INJURY [None]
  - DECREASED APPETITE [None]
  - LISTLESS [None]
  - MYOSITIS [None]
  - NIGHT SWEATS [None]
